FAERS Safety Report 4611321-1 (Version None)
Quarter: 2005Q1

REPORT INFORMATION
  Report Type: 
  Country: None (occurrence: None)
  Receive Date: 20050317
  Receipt Date: 20050314
  Transmission Date: 20050727
  Serious: Yes (Hospitalization)
  Sender: FDA-Public Use
  Company Number: PHRM2005FR01046

PATIENT
  Age: 83 Year
  Sex: Female

DRUGS (3)
  1. ISKEDYL [Concomitant]
     Route: 048
  2. PROZAC [Suspect]
     Dosage: 20 MG/DAY
     Route: 048
     Dates: start: 20050124, end: 20050202
  3. NISISCO [Suspect]
     Indication: HYPERTENSION
     Dosage: 1 DF, QD
     Route: 048
     Dates: start: 20050124, end: 20050202

REACTIONS (8)
  - BLOOD OSMOLARITY DECREASED [None]
  - BLOOD POTASSIUM DECREASED [None]
  - BLOOD SODIUM DECREASED [None]
  - BLOOD UREA INCREASED [None]
  - CONFUSIONAL STATE [None]
  - DISORIENTATION [None]
  - HYPONATRAEMIA [None]
  - MUSCULAR WEAKNESS [None]
